FAERS Safety Report 16257620 (Version 1)
Quarter: 2019Q2

REPORT INFORMATION
  Report Type: Spontaneous
  Country: US (occurrence: US)
  Receive Date: 20190430
  Receipt Date: 20190430
  Transmission Date: 20190711
  Serious: Yes (Hospitalization)
  Sender: FDA-Public Use
  Company Number: US-AGIOS-1902US00887

PATIENT

DRUGS (2)
  1. TIBSOVO [Suspect]
     Active Substance: IVOSIDENIB
     Indication: ACUTE MYELOID LEUKAEMIA
     Dosage: 500 MILLIGRAM
     Dates: start: 201901
  2. TIBSOVO [Suspect]
     Active Substance: IVOSIDENIB
     Dosage: 250 UNK

REACTIONS (2)
  - Electrocardiogram QT prolonged [Unknown]
  - Differentiation syndrome [Unknown]

NARRATIVE: CASE EVENT DATE: 201901
